FAERS Safety Report 20096806 (Version 1)
Quarter: 2021Q4

REPORT INFORMATION
  Report Type: Spontaneous
  Country: US (occurrence: None)
  Receive Date: 20211122
  Receipt Date: 20211122
  Transmission Date: 20220303
  Serious: No
  Sender: FDA-Public Use
  Company Number: None

PATIENT
  Age: 51 Year
  Sex: Female

DRUGS (1)
  1. SIMPONI [Suspect]
     Active Substance: GOLIMUMAB
     Indication: Rheumatoid arthritis
     Dosage: FREQUENCY : MONTHLY;?
     Route: 058
     Dates: start: 20210101

REACTIONS (5)
  - Dizziness [None]
  - Vertigo [None]
  - Rash [None]
  - Therapy interrupted [None]
  - Drug ineffective [None]

NARRATIVE: CASE EVENT DATE: 20210301
